FAERS Safety Report 6380422-2 (Version None)
Quarter: 2009Q3

REPORT INFORMATION
  Report Type: 
  Country: None (occurrence: None)
  Receive Date: 20090929
  Receipt Date: 20090917
  Transmission Date: 20100115
  Serious: Yes (Hospitalization, Other)
  Sender: FDA-Public Use
  Company Number: PHHY2009BR40177

PATIENT
  Age: 82 Year
  Sex: Female
  Weight: 40 kg

DRUGS (2)
  1. FORASEQ [Suspect]
     Indication: PULMONARY FIBROSIS
     Dosage: 1 CAPSULE OF EACH TREATMENT EVERY 12 HOURS
  2. DIPYRONE [Concomitant]
     Dosage: 25 DROPS, UNTIL TWICE A DAY

REACTIONS (5)
  - AGITATION [None]
  - ANXIETY [None]
  - MIDDLE INSOMNIA [None]
  - NERVOUSNESS [None]
  - RESTLESSNESS [None]
